FAERS Safety Report 6044988-4 (Version None)
Quarter: 2009Q1

REPORT INFORMATION
  Report Type: 
  Country: None (occurrence: None)
  Receive Date: 20090116
  Receipt Date: 20090116
  Transmission Date: 20090719
  Serious: Yes (Other)
  Sender: FDA-Public Use
  Company Number: None

PATIENT
  Sex: Female

DRUGS (1)
  1. OXYCODONE AND ACETAMINOPHEN [Suspect]
     Indication: BACK PAIN
     Dosage: 5/325MG Q12 PRN PAIN
     Dates: start: 20081226, end: 20081230

REACTIONS (1)
  - CONSTIPATION [None]
